FAERS Safety Report 8968223 (Version 1)
Quarter: 2012Q4

REPORT INFORMATION
  Report Type: 
  Country: US (occurrence: US)
  Receive Date: 20121217
  Receipt Date: 20121217
  Transmission Date: 20130627
  Serious: Yes (Other)
  Sender: FDA-Public Use
  Company Number: US-SAVIENT-2012S1000116

PATIENT
  Age: 63 Year
  Sex: Male

DRUGS (7)
  1. KRYSTEXXA [Suspect]
     Indication: DRUG USE FOR UNKNOWN INDICATION
     Dates: start: 20121126, end: 20121126
  2. LOSARTAN [Concomitant]
     Indication: PULMONARY HYPERTENSION
     Dates: start: 2012
  3. LOSARTAN [Concomitant]
     Indication: PULMONARY HYPERTENSION
  4. CLONIDINE [Concomitant]
     Indication: PULMONARY HYPERTENSION
     Dates: start: 20121129, end: 20121129
  5. CLONIDINE [Concomitant]
     Indication: PULMONARY HYPERTENSION
     Dates: start: 2012, end: 20121210
  6. CLONIDINE [Concomitant]
     Indication: PULMONARY HYPERTENSION
     Dates: start: 20121210
  7. DILTIAZEM [Concomitant]
     Indication: PULMONARY HYPERTENSION
     Dates: start: 20121129

REACTIONS (2)
  - Blood pressure increased [Not Recovered/Not Resolved]
  - Headache [Unknown]
